FAERS Safety Report 8597623-5 (Version None)
Quarter: 2012Q3

REPORT INFORMATION
  Report Type: 
  Country: None (occurrence: None)
  Receive Date: 20120816
  Receipt Date: 20120809
  Transmission Date: 20120928
  Serious: Yes (Hospitalization)
  Sender: FDA-Public Use
  Company Number: SE-UCBSA-060885

PATIENT
  Age: 61 Year
  Sex: Female
  Weight: 44 kg

DRUGS (2)
  1. CIMZIA [Suspect]
     Indication: RHEUMATOID ARTHRITIS
     Dosage: WEEK 0.2.4(NO LOADING DOSE), NO. OF DOSES RECEIVED: 05
     Dates: start: 20120501
  2. FURADANTIN [Concomitant]
     Indication: URINARY TRACT INFECTION
     Dates: start: 20120701

REACTIONS (10)
  - OEDEMA PERIPHERAL [None]
  - TRANSIENT ISCHAEMIC ATTACK [None]
  - HAEMORRHAGE [None]
  - URINARY TRACT INFECTION [None]
  - WEIGHT INCREASED [None]
  - CONSTIPATION [None]
  - PARAESTHESIA [None]
  - BLOOD POTASSIUM DECREASED [None]
  - MYALGIA [None]
  - DEPRESSED LEVEL OF CONSCIOUSNESS [None]
